FAERS Safety Report 13988146 (Version 2)
Quarter: 2017Q4

REPORT INFORMATION
  Report Type: Spontaneous
  Country: NZ (occurrence: NZ)
  Receive Date: 20170919
  Receipt Date: 20171106
  Transmission Date: 20180321
  Serious: Yes (Hospitalization, Disabling, Other)
  Sender: FDA-Public Use
  Company Number: NZ-B.I. PHARMACEUTICALS,INC./RIDGEFIELD-2017-BI-050208

PATIENT
  Age: 79 Year
  Sex: Male
  Weight: 96 kg

DRUGS (3)
  1. PRADAXA [Suspect]
     Active Substance: DABIGATRAN ETEXILATE MESYLATE
     Indication: ATRIAL FIBRILLATION
     Route: 065
     Dates: end: 20170904
  2. PEMBROLIZUMAB. [Concomitant]
     Active Substance: PEMBROLIZUMAB
     Indication: PRODUCT USED FOR UNKNOWN INDICATION
     Route: 065
     Dates: start: 20160707, end: 20170904
  3. EPACADOSTAT [Concomitant]
     Active Substance: EPACADOSTAT
     Indication: PRODUCT USED FOR UNKNOWN INDICATION
     Route: 065
     Dates: start: 20160707, end: 20170904

REACTIONS (8)
  - Malignant melanoma stage IV [Unknown]
  - Ischaemic stroke [Recovered/Resolved]
  - Musculoskeletal pain [Unknown]
  - Cerebrovascular accident [Unknown]
  - Off label use [Unknown]
  - Prostate ablation [Unknown]
  - Haemorrhage [Recovered/Resolved]
  - Prostatomegaly [Unknown]

NARRATIVE: CASE EVENT DATE: 20160223
